FAERS Safety Report 21764509 (Version 1)
Quarter: 2022Q4

REPORT INFORMATION
  Report Type: Report from Study
  Country: US (occurrence: US)
  Receive Date: 20221222
  Receipt Date: 20221222
  Transmission Date: 20230113
  Serious: Yes (Other)
  Sender: FDA-Public Use
  Company Number: US-BEH-2022153443

PATIENT
  Age: 30 Year
  Sex: Male

DRUGS (1)
  1. PRIVIGEN [Suspect]
     Active Substance: HUMAN IMMUNOGLOBULIN G
     Indication: Dermatomyositis
     Dosage: UNK
     Route: 042
     Dates: start: 201405, end: 202005

REACTIONS (20)
  - Anaphylactic reaction [Unknown]
  - Swelling face [Unknown]
  - Swollen tongue [Unknown]
  - Dysphagia [Unknown]
  - Chest discomfort [Unknown]
  - Pain [Unknown]
  - Pain in extremity [Unknown]
  - Arthralgia [Unknown]
  - Bone pain [Unknown]
  - Injection site reaction [Unknown]
  - Fatigue [Unknown]
  - Headache [Unknown]
  - Nausea [Unknown]
  - Infection [Unknown]
  - Dyspnoea [Unknown]
  - Painful respiration [Unknown]
  - No adverse event [Unknown]
  - Off label use [Unknown]
  - White blood cell count decreased [Unknown]
  - Neutrophil count decreased [Unknown]
